FAERS Safety Report 16669552 (Version 2)
Quarter: 2019Q3

REPORT INFORMATION
  Report Type: Spontaneous
  Country: DE (occurrence: DE)
  Receive Date: 20190805
  Receipt Date: 20190830
  Transmission Date: 20191004
  Serious: No
  Sender: FDA-Public Use
  Company Number: DE-ASTRAZENECA-2019SF11715

PATIENT
  Sex: Female

DRUGS (32)
  1. METOPROLOL. [Suspect]
     Active Substance: METOPROLOL
     Indication: HYPERTENSION
     Route: 065
  2. MIDAZOLAM [Suspect]
     Active Substance: MIDAZOLAM HYDROCHLORIDE
     Route: 065
  3. CEFOTAXIME [Suspect]
     Active Substance: CEFOTAXIME SODIUM
     Route: 065
  4. BETAMETHASONE. [Suspect]
     Active Substance: BETAMETHASONE
     Route: 065
  5. URAPIDIL [Suspect]
     Active Substance: URAPIDIL
     Route: 065
  6. PROPOFOL. [Suspect]
     Active Substance: PROPOFOL
     Route: 065
  7. METOCLOPRAMIDE. [Suspect]
     Active Substance: METOCLOPRAMIDE
     Route: 065
  8. ENOXAPARIN [Suspect]
     Active Substance: ENOXAPARIN
     Route: 065
  9. PIRITRAMIDE [Suspect]
     Active Substance: PIRITRAMIDE
     Route: 065
  10. COTRIMOXAZOLE [Suspect]
     Active Substance: SULFAMETHOXAZOLE\TRIMETHOPRIM
     Route: 065
  11. ATRACURIUM [Suspect]
     Active Substance: ATRACURIUM
     Route: 065
  12. NIMODIPINE. [Suspect]
     Active Substance: NIMODIPINE
     Route: 065
  13. DIHYDRALAZINE [Suspect]
     Active Substance: DIHYDRALAZINE
     Route: 065
  14. LORAZEPAM. [Suspect]
     Active Substance: LORAZEPAM
     Route: 065
  15. RANITIDINE. [Suspect]
     Active Substance: RANITIDINE
     Route: 065
  16. CEFUROXIME. [Suspect]
     Active Substance: CEFUROXIME
     Route: 065
  17. SIMVASTATIN. [Suspect]
     Active Substance: SIMVASTATIN
     Route: 065
  18. NOREPINEPHRINE. [Suspect]
     Active Substance: NOREPINEPHRINE
     Route: 065
  19. SUXAMETHONIUM [Suspect]
     Active Substance: SUCCINYLCHOLINE
     Route: 065
  20. GLYCERYL TRINITRATE [Suspect]
     Active Substance: NITROGLYCERIN
     Route: 065
  21. DESMOPRESSIN [Suspect]
     Active Substance: DESMOPRESSIN
     Route: 065
  22. SUFENTANIL [Suspect]
     Active Substance: SUFENTANIL
     Route: 065
  23. CLONIDINE. [Suspect]
     Active Substance: CLONIDINE
     Route: 065
  24. NIFEDIPINE. [Suspect]
     Active Substance: NIFEDIPINE
     Route: 065
  25. IOHEXOL [Suspect]
     Active Substance: IOHEXOL
     Route: 065
  26. HEPARIN [Suspect]
     Active Substance: HEPARIN SODIUM
     Route: 065
  27. CEFTAZIDIME. [Suspect]
     Active Substance: CEFTAZIDIME
     Route: 065
  28. ESOMEPRAZOLE. [Suspect]
     Active Substance: ESOMEPRAZOLE MAGNESIUM
     Indication: PROPHYLAXIS AGAINST GASTROINTESTINAL ULCER
     Route: 065
  29. PARACETAMOL [Suspect]
     Active Substance: ACETAMINOPHEN
     Indication: PAIN
     Dosage: 19000 MG IN TOTAL
     Route: 065
  30. METHYLDOPA. [Suspect]
     Active Substance: METHYLDOPA
     Route: 065
  31. RAMIFENTANYL [Suspect]
     Active Substance: REMIFENTANIL
     Route: 065
  32. METAMIZOLE [Suspect]
     Active Substance: METAMIZOLE
     Route: 065

REACTIONS (1)
  - Exposure during pregnancy [Unknown]
